FAERS Safety Report 11490923 (Version 4)
Quarter: 2015Q4

REPORT INFORMATION
  Report Type: Spontaneous
  Country: JP (occurrence: JP)
  Receive Date: 20150910
  Receipt Date: 20151224
  Transmission Date: 20160304
  Serious: Yes (Other)
  Sender: FDA-Public Use
  Company Number: PHJP2015JP015332

PATIENT
  Age: 84 Year
  Sex: Female
  Weight: 42 kg

DRUGS (11)
  1. EXELON PATCH [Suspect]
     Active Substance: RIVASTIGMINE
     Dosage: 4.6 MG/24H (PATCH 5, 9 MG RIVASTIGMINE BASE)
     Route: 062
  2. FAMOTIDINE. [Concomitant]
     Active Substance: FAMOTIDINE
     Indication: GASTROOESOPHAGEAL REFLUX DISEASE
     Dosage: 20 MG, BID
     Route: 048
     Dates: start: 20120825
  3. EXELON PATCH [Suspect]
     Active Substance: RIVASTIGMINE
     Dosage: 6.9 MG/24H (PATCH 7.5, 13.5 MG RIVASTIGMINE BASE)
     Route: 062
  4. CEROCRAL [Concomitant]
     Active Substance: IFENPRODIL
     Indication: DIZZINESS
     Dosage: 20 MG, BID
     Route: 048
     Dates: start: 20030723
  5. EXELON PATCH [Suspect]
     Active Substance: RIVASTIGMINE
     Dosage: 9.5 MG/24 HR (PATCH 10, 18 MG RIVASTIGMINE BASE)
     Route: 062
     Dates: start: 20150803, end: 20150829
  6. NICARDIPINE HYDROCHLORIDE. [Concomitant]
     Active Substance: NICARDIPINE HYDROCHLORIDE
     Indication: HYPERTENSION
     Dosage: 20 MG, QD
     Route: 048
     Dates: start: 19921111
  7. MERISLON [Concomitant]
     Active Substance: BETAHISTINE MESILATE
     Indication: DIZZINESS
     Dosage: 12 MG, BID
     Route: 048
     Dates: start: 20030627
  8. EURODIN//ESTAZOLAM [Concomitant]
     Indication: INSOMNIA
     Dosage: 2 MG, QD
     Route: 048
     Dates: start: 19971031
  9. CRESTOR [Concomitant]
     Active Substance: ROSUVASTATIN CALCIUM
     Indication: HYPERCHOLESTEROLAEMIA
     Dosage: 2.5 MG, QD
     Route: 048
     Dates: start: 19971028
  10. ADETPHOS [Concomitant]
     Active Substance: ADENOSINE TRIPHOSPHATE
     Indication: DIZZINESS
     Dosage: 1 G, BID
     Route: 048
     Dates: start: 20030627
  11. EXELON PATCH [Suspect]
     Active Substance: RIVASTIGMINE
     Indication: DEMENTIA ALZHEIMER^S TYPE
     Dosage: 1.9 MG/24H (PATCH 2.5, 4.5 MG RIVASTIGMINE BASE)
     Route: 062
     Dates: start: 20150515

REACTIONS (10)
  - Dizziness [Recovered/Resolved]
  - Heart rate decreased [Unknown]
  - Yawning [Unknown]
  - Chills [Unknown]
  - Blood pressure increased [Unknown]
  - Gait disturbance [Unknown]
  - Electrocardiogram QT prolonged [Recovered/Resolved]
  - Decreased appetite [Recovered/Resolved]
  - Headache [Unknown]
  - Nausea [Unknown]

NARRATIVE: CASE EVENT DATE: 20150828
